FAERS Safety Report 4950348-7 (Version None)
Quarter: 2006Q1

REPORT INFORMATION
  Report Type: 
  Country: None (occurrence: None)
  Receive Date: 20060322
  Receipt Date: 20060116
  Transmission Date: 20060701
  Serious: Yes (Other)
  Sender: FDA-Public Use
  Company Number: GB-BRISTOL-MYERS SQUIBB COMPANY-13320395

PATIENT
  Age: 52 Year
  Sex: Male

DRUGS (5)
  1. TRAZODONE HCL [Suspect]
     Indication: DEPRESSION
     Route: 030
  2. NOVORAPID [Concomitant]
     Dates: start: 20041025
  3. NABUMETONE [Concomitant]
     Dates: start: 20030721
  4. TRAMADOL HCL [Concomitant]
     Dates: start: 20031230
  5. OMEPRAZOLE [Concomitant]
     Dates: start: 20030522

REACTIONS (1)
  - JAUNDICE [None]
